FAERS Safety Report 4450139-X (Version None)
Quarter: 2004Q3

REPORT INFORMATION
  Report Type: 
  Country: None (occurrence: None)
  Receive Date: 20040915
  Receipt Date: 20040907
  Transmission Date: 20050211
  Serious: Yes (Hospitalization)
  Sender: FDA-Public Use
  Company Number: US-BRISTOL-MYERS SQUIBB COMPANY-12693768

PATIENT
  Age: 75 Year
  Sex: Female
  Weight: 60 kg

DRUGS (6)
  1. CARBOPLATIN [Suspect]
     Indication: NON-SMALL CELL LUNG CANCER
     Dosage: AUC 6
     Route: 042
     Dates: start: 20040816, end: 20040816
  2. XYOTAX [Suspect]
     Indication: NON-SMALL CELL LUNG CANCER
     Dosage: 210 MG/M2
     Route: 042
     Dates: start: 20040816, end: 20040816
  3. ESTRADIOL [Suspect]
     Indication: MENOPAUSE
     Route: 048
     Dates: start: 20030301, end: 20040820
  4. ARANESP [Suspect]
     Indication: ANAEMIA
     Route: 058
     Dates: start: 20040726, end: 20040816
  5. LEVOTHYROXINE SODIUM [Concomitant]
  6. TIMOLOL MALEATE [Concomitant]

REACTIONS (4)
  - FLANK PAIN [None]
  - LOOSE STOOLS [None]
  - NAUSEA [None]
  - PULMONARY EMBOLISM [None]
